FAERS Safety Report 18369580 (Version 1)
Quarter: 2020Q4

REPORT INFORMATION
  Report Type: Report from Study
  Country: None (occurrence: US)
  Receive Date: 20201012
  Receipt Date: 20201012
  Transmission Date: 20210114
  Serious: Yes (Other)
  Sender: FDA-Public Use
  Company Number: US-ABBVIE-19K-163-2946646-00

PATIENT
  Age: 58 Year
  Sex: Female

DRUGS (3)
  1. HUMIRA [Suspect]
     Active Substance: ADALIMUMAB
     Indication: PSORIASIS
     Route: 058
     Dates: start: 2020, end: 2020
  2. HUMIRA [Suspect]
     Active Substance: ADALIMUMAB
     Indication: PSORIATIC ARTHROPATHY
     Route: 058
     Dates: start: 20190923, end: 2020
  3. HUMIRA [Suspect]
     Active Substance: ADALIMUMAB
     Route: 058
     Dates: start: 2020

REACTIONS (27)
  - Carpal tunnel syndrome [Unknown]
  - Hypoaesthesia [Unknown]
  - Nasopharyngitis [Unknown]
  - Arthralgia [Not Recovered/Not Resolved]
  - Pain in extremity [Not Recovered/Not Resolved]
  - Psoriasis [Recovering/Resolving]
  - Gait disturbance [Recovered/Resolved]
  - Skin exfoliation [Recovered/Resolved]
  - Peripheral swelling [Not Recovered/Not Resolved]
  - Nerve compression [Unknown]
  - Back pain [Not Recovered/Not Resolved]
  - Impaired self-care [Unknown]
  - Anxiety [Unknown]
  - Intentional product misuse [Unknown]
  - Hyperhidrosis [Unknown]
  - Arthralgia [Unknown]
  - Erythema [Unknown]
  - Arthralgia [Unknown]
  - Throat irritation [Unknown]
  - Loss of personal independence in daily activities [Unknown]
  - Therapeutic product effect incomplete [Unknown]
  - Joint stiffness [Recovering/Resolving]
  - Paraesthesia [Not Recovered/Not Resolved]
  - Pain [Recovering/Resolving]
  - Spinal operation [Unknown]
  - Discomfort [Recovering/Resolving]
  - Psoriasis [Unknown]

NARRATIVE: CASE EVENT DATE: 2019
